FAERS Safety Report 23523235 (Version 2)
Quarter: 2024Q2

REPORT INFORMATION
  Report Type: Report from Study
  Country: US (occurrence: None)
  Receive Date: 20240214
  Receipt Date: 20240412
  Transmission Date: 20240715
  Serious: Yes (Other)
  Sender: FDA-Public Use
  Company Number: 2024A031750

PATIENT
  Age: 84 Year
  Sex: Male

DRUGS (1)
  1. BRILINTA [Suspect]
     Active Substance: TICAGRELOR
     Indication: Cardiac disorder
     Dosage: 90.0MG UNKNOWN
     Route: 048
     Dates: start: 20230317

REACTIONS (2)
  - Myocardial infarction [Recovering/Resolving]
  - Drug ineffective [Unknown]
